FAERS Safety Report 6652151-9 (Version None)
Quarter: 2010Q1

REPORT INFORMATION
  Report Type: 
  Country: None (occurrence: None)
  Receive Date: 20100325
  Receipt Date: 20100318
  Transmission Date: 20100710
  Serious: Yes (Hospitalization)
  Sender: FDA-Public Use
  Company Number: US-AMGEN-QUU397964

PATIENT
  Sex: Female

DRUGS (9)
  1. ARANESP [Suspect]
     Indication: RENAL FAILURE CHRONIC
     Route: 058
  2. PROTONIX [Concomitant]
  3. PRANDIN [Concomitant]
  4. Z BETA [Concomitant]
  5. PLAVIX [Concomitant]
  6. SIMVASTATIN [Concomitant]
  7. PROPAFENONE HCL [Concomitant]
  8. BUMETANIDE [Concomitant]
  9. INSULIN [Concomitant]

REACTIONS (4)
  - FALL [None]
  - HAEMOGLOBIN DECREASED [None]
  - HIP FRACTURE [None]
  - SERUM FERRITIN DECREASED [None]
